FAERS Safety Report 9162047 (Version 1)
Quarter: 2013Q1

REPORT INFORMATION
  Report Type: Spontaneous
  Country: US (occurrence: None)
  Receive Date: 20130225
  Receipt Date: 20130225
  Transmission Date: 20140127
  Serious: Yes (Hospitalization)
  Sender: FDA-Public Use
  Company Number: 2013-0271

PATIENT
  Age: 57 Year
  Sex: Female

DRUGS (1)
  1. CARFILZOMIB [Suspect]
     Indication: PLASMA CELL MYELOMA
     Dates: start: 20120927, end: 20120928

REACTIONS (7)
  - Blood pressure systolic increased [None]
  - Tremor [None]
  - Confusional state [None]
  - Proctitis [None]
  - Cellulitis [None]
  - Heart rate increased [None]
  - Body temperature increased [None]
